FAERS Safety Report 10049180 (Version 1)
Quarter: 2014Q2

REPORT INFORMATION
  Report Type: Spontaneous
  Country: DO (occurrence: DO)
  Receive Date: 20140401
  Receipt Date: 20140401
  Transmission Date: 20141212
  Serious: Yes (Death, Hospitalization)
  Sender: FDA-Public Use
  Company Number: DO-ROCHE-1369939

PATIENT
  Age: 53 Year
  Sex: Male

DRUGS (1)
  1. PEGASYS [Suspect]
     Indication: CHRONIC HEPATITIS C
     Route: 065
     Dates: end: 20140313

REACTIONS (7)
  - Septic shock [Fatal]
  - Hepatorenal syndrome [Fatal]
  - Generalised oedema [Unknown]
  - Fluid retention [Unknown]
  - Ascites [Unknown]
  - Pyrexia [Unknown]
  - Abdominal pain [Unknown]
